FAERS Safety Report 11115656 (Version 2)
Quarter: 2015Q2

REPORT INFORMATION
  Report Type: Report from Study
  Country: BR (occurrence: BR)
  Receive Date: 20150515
  Receipt Date: 20150605
  Transmission Date: 20150821
  Serious: Yes (Other)
  Sender: FDA-Public Use
  Company Number: PHHY2014BR093603

PATIENT
  Age: 48 Year
  Sex: Female
  Weight: 61.4 kg

DRUGS (8)
  1. MELOXICAM. [Concomitant]
     Active Substance: MELOXICAM
     Indication: ARTHRALGIA
     Dosage: 1 DF, QD
     Route: 065
  2. ULTRACET [Concomitant]
     Active Substance: ACETAMINOPHEN\TRAMADOL HYDROCHLORIDE
     Indication: ARTHRALGIA
     Dosage: 1 DF, QD
     Route: 065
  3. AFINITOR [Suspect]
     Active Substance: EVEROLIMUS
     Indication: BREAST CANCER
     Dosage: 1 DF, QD
     Route: 048
     Dates: start: 201309
  4. TANDRILAX [Concomitant]
     Active Substance: ACETAMINOPHEN\CAFFEINE\CARISOPRODOL\DICLOFENAC SODIUM
     Indication: ARTHRALGIA
     Dosage: 1 DF, QD
     Route: 065
  5. ZOMETA [Suspect]
     Active Substance: ZOLEDRONIC ACID
     Indication: METASTASES TO BONE
     Dosage: EACH 28 DAYS
     Route: 065
  6. AFINITOR [Suspect]
     Active Substance: EVEROLIMUS
     Dosage: 0.5 DF, QD
     Route: 048
     Dates: end: 201501
  7. ULTRACET [Concomitant]
     Active Substance: ACETAMINOPHEN\TRAMADOL HYDROCHLORIDE
     Dosage: 1 DF, QOD
     Route: 065
  8. TANDRILAX [Concomitant]
     Active Substance: ACETAMINOPHEN\CAFFEINE\CARISOPRODOL\DICLOFENAC SODIUM
     Dosage: 1 DF, QOD
     Route: 065

REACTIONS (13)
  - Bone formation increased [Recovered/Resolved]
  - Off label use [Unknown]
  - Candida infection [Recovering/Resolving]
  - Fatigue [Recovering/Resolving]
  - Osteitis [Recovered/Resolved]
  - Incorrect dose administered [Unknown]
  - Stomatitis [Recovering/Resolving]
  - Osteomyelitis [Recovered/Resolved]
  - Mouth injury [Recovering/Resolving]
  - Drug ineffective [Unknown]
  - Hepatic neoplasm [Unknown]
  - Wound [Recovered/Resolved]
  - Impaired healing [Recovering/Resolving]

NARRATIVE: CASE EVENT DATE: 201401
